FAERS Safety Report 23053399 (Version 1)
Quarter: 2023Q4

REPORT INFORMATION
  Report Type: Spontaneous
  Country: IT (occurrence: IT)
  Receive Date: 20231011
  Receipt Date: 20231011
  Transmission Date: 20240109
  Serious: Yes (Other)
  Sender: FDA-Public Use
  Company Number: IT-002147023-NVSC2023IT216449

PATIENT
  Age: 59 Year
  Sex: Male

DRUGS (1)
  1. LEQVIO [Suspect]
     Active Substance: INCLISIRAN SODIUM
     Indication: Hypercholesterolaemia
     Dosage: 284 MG (ONE DOSE A TO, SECOND DOSE AFTER 3  MONTHS. HENCE AFTER 6 MONTH)
     Route: 058
     Dates: start: 202306

REACTIONS (1)
  - Acute myocardial infarction [Not Recovered/Not Resolved]
